FAERS Safety Report 8869022 (Version 1)
Quarter: 2012Q4

REPORT INFORMATION
  Report Type: 
  Country: US (occurrence: US)
  Receive Date: 20121023
  Receipt Date: 20121023
  Transmission Date: 20130627
  Serious: No
  Sender: FDA-Public Use
  Company Number: US-AMGEN-USASP2012054941

PATIENT
  Age: 61 Year
  Sex: Female

DRUGS (1)
  1. ENBREL [Suspect]
     Indication: RHEUMATOID ARTHRITIS
     Dosage: 50 mg, weekly
     Route: 058
     Dates: start: 20080220

REACTIONS (7)
  - Vomiting [Unknown]
  - Pain in extremity [Unknown]
  - Oedema peripheral [Unknown]
  - Nausea [Unknown]
  - Hypersensitivity [Unknown]
  - Pyrexia [Unknown]
  - Sinusitis [Recovering/Resolving]
